FAERS Safety Report 19864060 (Version 4)
Quarter: 2021Q4

REPORT INFORMATION
  Report Type: Spontaneous
  Country: SI (occurrence: SI)
  Receive Date: 20210921
  Receipt Date: 20211028
  Transmission Date: 20220303
  Serious: Yes (Other)
  Sender: FDA-Public Use
  Company Number: SI-BAYER-2021-211864

PATIENT

DRUGS (8)
  1. EYLEA [Suspect]
     Active Substance: AFLIBERCEPT
     Indication: Product used for unknown indication
     Dosage: UNK, TOTAL NUMBER OF INJECTIONS: 4
     Route: 031
     Dates: start: 2018
  2. EYLEA [Suspect]
     Active Substance: AFLIBERCEPT
     Dosage: UNK. TOTAL NUMBER OF INJECTIONS: 2
     Dates: start: 2019, end: 2019
  3. EYLEA [Suspect]
     Active Substance: AFLIBERCEPT
     Dosage: UNK. TOTAL NUMBER OF INJECTIONS: 5
     Dates: start: 2020, end: 2020
  4. EYLEA [Suspect]
     Active Substance: AFLIBERCEPT
     Dosage: UNK, ONCE
     Route: 031
     Dates: start: 20210706, end: 20210706
  5. EYLEA [Suspect]
     Active Substance: AFLIBERCEPT
     Dosage: UNK, ONCE
     Route: 031
     Dates: start: 20210824, end: 20210824
  6. BEOVU [Suspect]
     Active Substance: BROLUCIZUMAB-DBLL
     Indication: Product used for unknown indication
     Dosage: UNK UNK, ONCE
     Route: 031
     Dates: start: 20210407, end: 20210407
  7. BEOVU [Suspect]
     Active Substance: BROLUCIZUMAB-DBLL
     Dosage: UNK UNK, ONCE
     Route: 031
     Dates: start: 20210504, end: 20210504
  8. BEOVU [Suspect]
     Active Substance: BROLUCIZUMAB-DBLL
     Dosage: UNK UNK, ONCE
     Route: 031
     Dates: start: 20210614, end: 20210614

REACTIONS (6)
  - Retinal vasculitis [Recovered/Resolved]
  - Retinal oedema [Recovered/Resolved]
  - Eye inflammation [Recovered/Resolved]
  - Vitreous disorder [Recovered/Resolved]
  - Visual field defect [Recovered/Resolved]
  - Dyschromatopsia [Recovered/Resolved]

NARRATIVE: CASE EVENT DATE: 20210511
